FAERS Safety Report 14758186 (Version 2)
Quarter: 2018Q3

REPORT INFORMATION
  Report Type: Spontaneous
  Country: NL (occurrence: NL)
  Receive Date: 20180413
  Receipt Date: 20180725
  Transmission Date: 20181010
  Serious: Yes (Death, Other)
  Sender: FDA-Public Use
  Company Number: PHHY2018NL020754

PATIENT
  Age: 71 Year
  Sex: Male

DRUGS (13)
  1. OMEPRAZOLE. [Concomitant]
     Active Substance: OMEPRAZOLE
     Indication: CHEST PAIN
     Dosage: 40 MG, UNK
     Route: 065
  2. CYTISINE [Concomitant]
     Active Substance: CYTISINE
     Indication: PRODUCT USED FOR UNKNOWN INDICATION
     Dosage: 2000 MG, (EVERY SIS MONTHS)
     Route: 042
  3. CASPOFUNGIN [Suspect]
     Active Substance: CASPOFUNGIN
     Indication: CANDIDA INFECTION
     Dosage: 70 MG, QD
     Route: 065
  4. CASPOFUNGIN [Suspect]
     Active Substance: CASPOFUNGIN
     Indication: OESOPHAGEAL CANDIDIASIS
  5. FLUCYTOSINE. [Suspect]
     Active Substance: FLUCYTOSINE
     Indication: CANDIDA INFECTION
     Dosage: 2000 MG, Q6H
     Route: 042
  6. FLUCYTOSINE. [Suspect]
     Active Substance: FLUCYTOSINE
     Indication: OESOPHAGEAL CANDIDIASIS
  7. FLUCONAZOLE. [Suspect]
     Active Substance: FLUCONAZOLE
     Indication: CANDIDA INFECTION
     Dosage: 200 MG, QD (FOR TWO WEEKS)
     Route: 065
  8. G?CSF [Concomitant]
     Active Substance: GRANULOCYTE COLONY-STIMULATING FACTOR NOS
     Indication: PRODUCT USED FOR UNKNOWN INDICATION
     Dosage: 300 MG, (THREE TIMES PER WEEK FOR ONE MONTH)
     Route: 058
  9. FILGRASTIM [Suspect]
     Active Substance: FILGRASTIM
     Indication: CANDIDA INFECTION
     Dosage: 300 MG, Q3W (FOR ONE MONTH)
     Route: 058
  10. FLUCONAZOLE. [Suspect]
     Active Substance: FLUCONAZOLE
     Dosage: 800 MG, QD
     Route: 065
  11. AMPHOTERICIN B. [Suspect]
     Active Substance: AMPHOTERICIN B
     Indication: CANDIDA INFECTION
     Dosage: 400 MG, UNK (SIX TIMES FOR TWO WEEKS)
     Route: 048
  12. AMPHOTERICIN B. [Suspect]
     Active Substance: AMPHOTERICIN B
     Indication: OESOPHAGEAL CANDIDIASIS
  13. FLUCONAZOLE. [Suspect]
     Active Substance: FLUCONAZOLE
     Indication: OESOPHAGEAL CANDIDIASIS
     Dosage: 150 MG, QD
     Route: 065

REACTIONS (12)
  - Inappropriate schedule of drug administration [Unknown]
  - Respiratory failure [Fatal]
  - Drug resistance [Unknown]
  - Product use in unapproved indication [Unknown]
  - Oesophageal candidiasis [Fatal]
  - Incorrect drug administration duration [Unknown]
  - Candida infection [Fatal]
  - Off label use [Fatal]
  - Condition aggravated [Fatal]
  - Squamous cell carcinoma [Fatal]
  - Weight decreased [Fatal]
  - Pathogen resistance [Unknown]
